FAERS Safety Report 7972671-4 (Version None)
Quarter: 2011Q4

REPORT INFORMATION
  Report Type: 
  Country: None (occurrence: None)
  Receive Date: 20111209
  Receipt Date: 20111128
  Transmission Date: 20120403
  Serious: Yes (Life-Threatening, Other)
  Sender: FDA-Public Use
  Company Number: 2011P1013486

PATIENT
  Age: 17 Month
  Sex: Male

DRUGS (1)
  1. PROPRANOLOL [Suspect]
     Indication: ANGIOPATHY
     Dosage: 1 MG/KG/D;QD;PO
     Route: 048

REACTIONS (1)
  - SOMNOLENCE [None]
